FAERS Safety Report 26082617 (Version 1)
Quarter: 2025Q4

REPORT INFORMATION
  Report Type: Spontaneous
  Country: US (occurrence: None)
  Receive Date: 20251121
  Receipt Date: 20251121
  Transmission Date: 20260118
  Serious: Yes (Hospitalization)
  Sender: FDA-CTU
  Company Number: None

PATIENT
  Age: 8 Year
  Sex: Male
  Weight: 19.8 kg

DRUGS (7)
  1. KALYDECO [Suspect]
     Active Substance: IVACAFTOR
     Indication: Cystic fibrosis
     Dosage: FREQUENCY : TWICE A DAY;?
     Route: 048
     Dates: start: 20230629
  2. ALBUTEROL 0.083% NEB SOL [Concomitant]
  3. ALBUTEROL HFA INH [Concomitant]
  4. CYPROHEPTADINE 2MG/5ML SYRUP [Concomitant]
  5. MVW BUBBLE GUM CHEWABLE TAB [Concomitant]
  6. POLYETH GLYCOL 3350 NF POWDER [Concomitant]
  7. PULMOZYME [Concomitant]
     Active Substance: DORNASE ALFA

REACTIONS (1)
  - Orthopaedic procedure [None]

NARRATIVE: CASE EVENT DATE: 20251121
